FAERS Safety Report 12483080 (Version 1)
Quarter: 2016Q2

REPORT INFORMATION
  Report Type: Spontaneous
  Country: US (occurrence: US)
  Receive Date: 20160620
  Receipt Date: 20160620
  Transmission Date: 20160815
  Serious: No
  Sender: FDA-Public Use
  Company Number: US-009507513-1606USA001726

PATIENT
  Age: 34 Year
  Sex: Female
  Weight: 107.94 kg

DRUGS (2)
  1. NEXPLANON [Suspect]
     Active Substance: ETONOGESTREL
     Dosage: UNK
     Route: 059
     Dates: start: 201606
  2. NEXPLANON [Suspect]
     Active Substance: ETONOGESTREL
     Indication: CONTRACEPTION
     Dosage: UNK
     Route: 059
     Dates: start: 20160411, end: 20160602

REACTIONS (4)
  - Wound [Unknown]
  - Device expulsion [Recovered/Resolved]
  - Implant site infection [Recovering/Resolving]
  - Implant site erythema [Unknown]

NARRATIVE: CASE EVENT DATE: 20160526
